FAERS Safety Report 7059964-2 (Version None)
Quarter: 2010Q4

REPORT INFORMATION
  Report Type: 
  Country: None (occurrence: None)
  Receive Date: 20101025
  Receipt Date: 20101015
  Transmission Date: 20110411
  Serious: No
  Sender: FDA-Public Use
  Company Number: US-B.I. PHARMACEUTICALS,INC./RIDGEFIELD-2010-BP-10365BP

PATIENT
  Age: 55 Year
  Sex: Female

DRUGS (6)
  1. MIRAPEX [Suspect]
     Indication: RESTLESS LEGS SYNDROME
     Dosage: 0.375 MG
     Route: 048
     Dates: start: 20100801
  2. ZOLOFT [Concomitant]
     Indication: DEPRESSION
  3. TRAMADOL [Concomitant]
     Indication: LIMB DISCOMFORT
  4. SYNTHROID [Concomitant]
     Indication: HYPOTHYROIDISM
  5. VITAMIN B-12 [Concomitant]
  6. PRILOSEC OTC [Concomitant]
     Indication: ULCER

REACTIONS (3)
  - HEADACHE [None]
  - VULVOVAGINAL BURNING SENSATION [None]
  - VULVOVAGINAL PRURITUS [None]
